FAERS Safety Report 7781625-2 (Version None)
Quarter: 2011Q3

REPORT INFORMATION
  Report Type: 
  Country: None (occurrence: None)
  Receive Date: 20110927
  Receipt Date: 20110926
  Transmission Date: 20111222
  Serious: Yes (Other)
  Sender: FDA-Public Use
  Company Number: CHPA2011GB12602

PATIENT
  Sex: Male
  Weight: 31.75 kg

DRUGS (3)
  1. SCOPOLAMINE [Suspect]
     Route: 048
     Dates: start: 20110916, end: 20110916
  2. SCOPOLAMINE [Suspect]
     Dosage: UNK, UNK
     Route: 062
     Dates: start: 20020101, end: 20020101
  3. SCOPOLAMINE [Suspect]
     Indication: SALIVARY HYPERSECRETION
     Dosage: 1 DF, Q72H
     Route: 062
     Dates: start: 20110601, end: 20110916

REACTIONS (11)
  - APPLICATION SITE IRRITATION [None]
  - OFF LABEL USE [None]
  - PRURITUS [None]
  - RASH ERYTHEMATOUS [None]
  - WRONG TECHNIQUE IN DRUG USAGE PROCESS [None]
  - ERUCTATION [None]
  - FOOD AVERSION [None]
  - VOMITING [None]
  - HYPERSOMNIA [None]
  - DYSKINESIA [None]
  - INCORRECT ROUTE OF DRUG ADMINISTRATION [None]
